FAERS Safety Report 23685863 (Version 1)
Quarter: 2024Q1

REPORT INFORMATION
  Report Type: Spontaneous
  Country: CN (occurrence: CN)
  Receive Date: 20240329
  Receipt Date: 20240329
  Transmission Date: 20240410
  Serious: Yes (Other)
  Sender: FDA-Public Use
  Company Number: CN-009507513-2403CHN007746

PATIENT
  Age: 9 Year
  Sex: Female

DRUGS (10)
  1. CASPOFUNGIN ACETATE [Suspect]
     Active Substance: CASPOFUNGIN ACETATE
     Indication: Infection prophylaxis
     Dosage: UNK
  2. CYCLOSPORINE [Suspect]
     Active Substance: CYCLOSPORINE
     Indication: Prophylaxis against graft versus host disease
     Dosage: 3-5 MG/(KG?D), THE PLASMA DRUG CONCENTRATION WAS ADJUSTED TO 150~250NG/ML DURING ADMINISTRATION
     Route: 042
  3. FLUDARABINE [Suspect]
     Active Substance: FLUDARABINE PHOSPHATE
     Dosage: 40MG/(M2?D), D-7 TO D-4
  4. CYCLOPHOSPHAMIDE [Suspect]
     Active Substance: CYCLOPHOSPHAMIDE
     Dosage: 20MG/(KG?D), D-5 TO D-2
  5. THYMOCYTE IMMUNE GLOBULIN NOS [Suspect]
     Active Substance: THYMOCYTE IMMUNE GLOBULIN NOS
     Dosage: 2.5MG/(KG?D), D-5 TO D-2.
  6. MYCOPHENOLATE MOFETIL [Suspect]
     Active Substance: MYCOPHENOLATE MOFETIL
     Indication: Prophylaxis against graft versus host disease
     Dosage: 30MG/(KG?D) ORALLY ON -7D
     Route: 048
  7. GANCICLOVIR [Suspect]
     Active Substance: GANCICLOVIR
     Indication: Infection prophylaxis
     Dosage: 10 MG/(KG?D)
  8. STANOZOLOL [Concomitant]
     Active Substance: STANOZOLOL
     Indication: Congenital dyskeratosis
  9. ALPROSTADIL [Concomitant]
     Active Substance: ALPROSTADIL
     Indication: Venoocclusive disease
  10. URSODIOL [Concomitant]
     Active Substance: URSODIOL
     Indication: Venoocclusive disease

REACTIONS (3)
  - Drug-induced liver injury [Recovering/Resolving]
  - Product use in unapproved indication [Unknown]
  - Labelled drug-drug interaction issue [Unknown]
